FAERS Safety Report 4989375-2 (Version None)
Quarter: 2006Q2

REPORT INFORMATION
  Report Type: 
  Country: None (occurrence: None)
  Receive Date: 20060426
  Receipt Date: 20060405
  Transmission Date: 20061013
  Serious: Yes (Hospitalization)
  Sender: FDA-Public Use
  Company Number: US200604001037

PATIENT
  Age: 85 Year
  Sex: Male
  Weight: 53.5 kg

DRUGS (2)
  1. HUMULIN N [Suspect]
     Indication: DIABETES MELLITUS
     Dates: start: 19940101, end: 20040101
  2. HUMALOG [Suspect]
     Indication: DIABETES MELLITUS
     Dates: start: 20040101

REACTIONS (4)
  - CAROTID ARTERY OCCLUSION [None]
  - PARKINSON'S DISEASE [None]
  - ROAD TRAFFIC ACCIDENT [None]
  - WEIGHT DECREASED [None]
